FAERS Safety Report 21189805 (Version 1)
Quarter: 2022Q3

REPORT INFORMATION
  Report Type: Spontaneous
  Country: FR (occurrence: FR)
  Receive Date: 20220809
  Receipt Date: 20220809
  Transmission Date: 20221027
  Serious: Yes (Hospitalization, Other)
  Sender: FDA-Public Use
  Company Number: None

PATIENT
  Age: 24 Year
  Sex: Male

DRUGS (5)
  1. ZOLPIDEM [Suspect]
     Active Substance: ZOLPIDEM TARTRATE
     Indication: Product used for unknown indication
     Dosage: UNK (10 MG PER OS)
     Route: 048
  2. ZOLPIDEM [Suspect]
     Active Substance: ZOLPIDEM TARTRATE
     Dosage: UNK (10 MG INJECT? LE SOIR)
     Route: 042
  3. COCAINE [Suspect]
     Active Substance: COCAINE
     Indication: Product used for unknown indication
     Dosage: UNK (0.5G/J EN SNIFF OU FUM?E)
  4. COCAINE [Suspect]
     Active Substance: COCAINE
     Dosage: 1 PRISE IV/SEMAINE
     Route: 042
  5. ALCOHOL [Suspect]
     Active Substance: ALCOHOL
     Indication: Product used for unknown indication
     Dosage: UNK (6-7 BI?RES HT/J)
     Route: 048

REACTIONS (1)
  - Substance use disorder [Not Recovered/Not Resolved]
